FAERS Safety Report 21659483 (Version 1)
Quarter: 2022Q4

REPORT INFORMATION
  Report Type: Spontaneous
  Country: US (occurrence: US)
  Receive Date: 20221129
  Receipt Date: 20221129
  Transmission Date: 20230112
  Serious: Yes (Other)
  Sender: FDA-Public Use
  Company Number: US-COOPERSURGICAL, INC.-US-2022CPS004073

PATIENT
  Sex: Female
  Weight: 66.213 kg

DRUGS (1)
  1. PARAGARD T 380A [Suspect]
     Active Substance: COPPER
     Indication: Product used for unknown indication
     Dosage: UNK
     Route: 015
     Dates: start: 20170320, end: 20221116

REACTIONS (5)
  - Cervical dysplasia [Not Recovered/Not Resolved]
  - Sensation of foreign body [Recovered/Resolved]
  - Vulvovaginal mycotic infection [Recovered/Resolved]
  - Device expulsion [Recovered/Resolved]
  - Discomfort [Recovered/Resolved]

NARRATIVE: CASE EVENT DATE: 20220101
